FAERS Safety Report 8979178 (Version 3)
Quarter: 2013Q1

REPORT INFORMATION
  Report Type: Spontaneous
  Country: US (occurrence: US)
  Receive Date: 20121221
  Receipt Date: 20130227
  Transmission Date: 20140127
  Serious: Yes (Death)
  Sender: FDA-Public Use
  Company Number: US-GLAXOSMITHKLINE-A1006260A

PATIENT
  Age: 77 Year
  Sex: Male

DRUGS (16)
  1. VOTRIENT [Suspect]
     Indication: RENAL CELL CARCINOMA
     Dosage: 200MG UNKNOWN
     Route: 065
     Dates: start: 20120510
  2. PRAVASTATIN [Concomitant]
  3. DOXAZOSIN [Concomitant]
  4. DICLOFENAC [Concomitant]
  5. CALCIUM [Concomitant]
  6. KLOR CON [Concomitant]
  7. MULTIVITAMIN [Concomitant]
  8. TYLENOL [Concomitant]
  9. NORCO [Concomitant]
  10. BYSTOLIC [Concomitant]
  11. CELEXA [Concomitant]
  12. OMEPRAZOLE [Concomitant]
  13. NYSTATIN [Concomitant]
  14. DECADRON [Concomitant]
  15. TEMAZEPAM [Concomitant]
  16. CHEMOTHERAPY [Concomitant]

REACTIONS (4)
  - Renal cancer [Fatal]
  - Metastases to bone [Fatal]
  - Metastases to liver [Fatal]
  - Metastases to central nervous system [Fatal]
